FAERS Safety Report 6719654-X (Version None)
Quarter: 2010Q2

REPORT INFORMATION
  Report Type: 
  Country: None (occurrence: None)
  Receive Date: 20100511
  Receipt Date: 20100504
  Transmission Date: 20101027
  Serious: Yes (Hospitalization)
  Sender: FDA-Public Use
  Company Number: B0652157A

PATIENT
  Sex: Female

DRUGS (7)
  1. ALLI [Suspect]
     Indication: DRUG USE FOR UNKNOWN INDICATION
     Dates: start: 20090601
  2. FLIXOTIDE [Concomitant]
     Dosage: 250MCG TWICE PER DAY
     Route: 055
     Dates: start: 20090525
  3. METOPROLOL [Concomitant]
  4. ACTONEL [Concomitant]
     Dosage: 35MG WEEKLY
  5. CETIRIZINE DIHYDROCHLORIDE [Concomitant]
     Dates: start: 20090525
  6. FLUVOXAMINE MALEATE [Concomitant]
     Dosage: 100MG PER DAY
     Dates: start: 20090525
  7. LIVIAL [Concomitant]
     Dosage: 2.5MG PER DAY

REACTIONS (4)
  - CONSTIPATION [None]
  - DIARRHOEA [None]
  - DIVERTICULITIS [None]
  - GASTRIC ULCER [None]
